FAERS Safety Report 15286528 (Version 4)
Quarter: 2018Q4

REPORT INFORMATION
  Report Type: Spontaneous
  Country: JP (occurrence: JP)
  Receive Date: 20180816
  Receipt Date: 20181204
  Transmission Date: 20190204
  Serious: Yes (Death)
  Sender: FDA-Public Use
  Company Number: JP-ACTELION-A-NJ2018-177599

PATIENT
  Age: 69 Year
  Sex: Female
  Weight: 47 kg

DRUGS (10)
  1. VENTAVIS [Suspect]
     Active Substance: ILOPROST
     Dosage: 5 MCG, 6ID
     Route: 055
     Dates: start: 20180707, end: 20180726
  2. VENTAVIS [Suspect]
     Active Substance: ILOPROST
     Dosage: 5 MCG, TID
     Route: 055
     Dates: start: 20180706, end: 20180706
  3. VENTAVIS [Suspect]
     Active Substance: ILOPROST
     Dosage: 2.5 MCG, UNK
     Route: 055
     Dates: start: 20180706, end: 20180706
  4. TACROLIMUS. [Concomitant]
     Active Substance: TACROLIMUS
     Indication: INTERSTITIAL LUNG DISEASE
     Dosage: UNK
     Dates: start: 20170704, end: 20180803
  5. TADALAFIL. [Concomitant]
     Active Substance: TADALAFIL
     Indication: PULMONARY ARTERIAL HYPERTENSION
     Dosage: UNK
     Dates: start: 20180613, end: 20180803
  6. OXYGEN. [Concomitant]
     Active Substance: OXYGEN
     Indication: PULMONARY ARTERIAL HYPERTENSION
     Dosage: UNK
     Dates: start: 20170619, end: 20180803
  7. VENTAVIS [Suspect]
     Active Substance: ILOPROST
     Dosage: 5 MCG, 9ID
     Route: 055
     Dates: start: 20180727, end: 20180801
  8. PREDNISOLONE. [Concomitant]
     Active Substance: PREDNISOLONE
     Dosage: UNK
     Dates: start: 20170704, end: 20170731
  9. OPSUMIT [Suspect]
     Active Substance: MACITENTAN
     Indication: PULMONARY ARTERIAL HYPERTENSION
     Dosage: UNK
     Route: 048
     Dates: start: 20180613, end: 20180730
  10. VENTAVIS [Suspect]
     Active Substance: ILOPROST
     Indication: PULMONARY ARTERIAL HYPERTENSION
     Dosage: 5 MCG, 6ID
     Route: 055
     Dates: start: 20180802, end: 20180803

REACTIONS (4)
  - Respiratory failure [Fatal]
  - Hypoxia [Fatal]
  - Pulmonary arterial hypertension [Fatal]
  - Interstitial lung disease [Fatal]

NARRATIVE: CASE EVENT DATE: 201808
